FAERS Safety Report 6756328-3 (Version None)
Quarter: 2010Q2

REPORT INFORMATION
  Report Type: 
  Country: None (occurrence: None)
  Receive Date: 20100604
  Receipt Date: 20100531
  Transmission Date: 20101027
  Serious: Yes (Death)
  Sender: FDA-Public Use
  Company Number: DK-ROCHE-706595

PATIENT

DRUGS (2)
  1. CAPECITABINE [Suspect]
     Dosage: DAYS 1-14
     Route: 048
  2. OXALIPLATIN [Suspect]
     Dosage: ON DAY 1 OF EACH CYCLE.
     Route: 042

REACTIONS (1)
  - FEBRILE NEUTROPENIA [None]
